FAERS Safety Report 17244419 (Version 2)
Quarter: 2020Q1

REPORT INFORMATION
  Report Type: Report from Study
  Country: US (occurrence: US)
  Receive Date: 20200107
  Receipt Date: 20200228
  Transmission Date: 20200409
  Serious: Yes (Hospitalization)
  Sender: FDA-Public Use
  Company Number: US-EXELIXIS-XL18420026458

PATIENT

DRUGS (7)
  1. XL184 [Suspect]
     Active Substance: CABOZANTINIB
     Indication: TRANSITIONAL CELL CARCINOMA METASTATIC
     Dosage: 40 MG, QD, 28 DAYS (CYCLES 1-21)
     Route: 048
     Dates: start: 20170614
  2. NIVOLUMAB [Suspect]
     Active Substance: NIVOLUMAB
     Indication: TRANSITIONAL CELL CARCINOMA METASTATIC
     Dosage: 3MG/KG OVER 60 MINUTES ON DAYS 1 AND 15
     Route: 042
     Dates: start: 20170614
  3. XL184 [Suspect]
     Active Substance: CABOZANTINIB
     Dosage: 40 MG, QD (POST-PROGRESSION)
     Route: 048
  4. IPILIMUMAB [Suspect]
     Active Substance: IPILIMUMAB
     Indication: TRANSITIONAL CELL CARCINOMA METASTATIC
     Dosage: 1 MG/KG, OVER 90 MINUTES ON DAY 1
     Route: 042
  5. XL184 [Suspect]
     Active Substance: CABOZANTINIB
     Dosage: 40 MG, QD (CYCLE-22+)
     Route: 048
  6. NIVOLUMAB [Suspect]
     Active Substance: NIVOLUMAB
     Dosage: 480 MG, OVER 60 MINUTES ON DAY 1
     Route: 042
  7. NIVOLUMAB [Suspect]
     Active Substance: NIVOLUMAB
     Dosage: 3MG/KG, OVER 60 MINUTES ON DAYS 1 AND 15
     Route: 042

REACTIONS (2)
  - Oesophagitis [Recovered/Resolved]
  - Generalised oedema [Not Recovered/Not Resolved]

NARRATIVE: CASE EVENT DATE: 20191217
